FAERS Safety Report 15644072 (Version 1)
Quarter: 2018Q4

REPORT INFORMATION
  Report Type: Report from Study
  Country: TW (occurrence: TW)
  Receive Date: 20181121
  Receipt Date: 20181121
  Transmission Date: 20190205
  Serious: Yes (Other)
  Sender: FDA-Public Use
  Company Number: PHHY2016TW187276

PATIENT
  Sex: Female

DRUGS (6)
  1. ULSTOP [Concomitant]
     Indication: PRODUCT USED FOR UNKNOWN INDICATION
     Dosage: 2 DF, QD
     Route: 048
  2. EPOETIN [Concomitant]
     Active Substance: ERYTHROPOIETIN
     Indication: PRODUCT USED FOR UNKNOWN INDICATION
     Dosage: 1 DF, QW
     Route: 058
  3. RIBAVIRIN. [Concomitant]
     Active Substance: RIBAVIRIN
     Indication: PRODUCT USED FOR UNKNOWN INDICATION
     Dosage: 5 DF, QD
     Route: 048
  4. ACETAMINOPHEN. [Concomitant]
     Active Substance: ACETAMINOPHEN
     Indication: PRODUCT USED FOR UNKNOWN INDICATION
     Dosage: 1 DF, Q6H (PRN)
     Route: 048
  5. REVOLADE [Suspect]
     Active Substance: ELTROMBOPAG
     Indication: THROMBOCYTOPENIA
     Dosage: 25 MG, (1# Q3D-Q2D)
     Route: 048
     Dates: start: 20180514
  6. FERROUS GLUCO-B [Concomitant]
     Indication: PRODUCT USED FOR UNKNOWN INDICATION
     Dosage: 1 DF, TID
     Route: 048

REACTIONS (12)
  - Chronic kidney disease [Unknown]
  - Oesophageal varices haemorrhage [Unknown]
  - Anaemia [Unknown]
  - Glycosylated haemoglobin increased [Unknown]
  - Splenomegaly [Unknown]
  - Cholelithiasis [Unknown]
  - Blood triglycerides increased [Unknown]
  - Gastrooesophageal reflux disease [Unknown]
  - Hepatic cirrhosis [Unknown]
  - Varices oesophageal [Unknown]
  - Herpes zoster [Unknown]
  - Inappropriate schedule of product administration [Unknown]
